FAERS Safety Report 7934142-0 (Version None)
Quarter: 2011Q4

REPORT INFORMATION
  Report Type: 
  Country: None (occurrence: None)
  Receive Date: 20111122
  Receipt Date: 20111110
  Transmission Date: 20120403
  Serious: Yes (Other)
  Sender: FDA-Public Use
  Company Number: CA-ELI_LILLY_AND_COMPANY-CA201110002690

PATIENT
  Age: 64 Year
  Sex: Female

DRUGS (4)
  1. SYMBICORT [Concomitant]
  2. FORTEO [Suspect]
     Indication: OSTEOPOROSIS
     Dosage: 20 UG, QD
     Route: 058
     Dates: start: 20100902
  3. SYNTHROID [Concomitant]
  4. PANTOLOC                           /01263202/ [Concomitant]

REACTIONS (1)
  - CERVICAL DYSPLASIA [None]
